FAERS Safety Report 6935097-8 (Version None)
Quarter: 2010Q3

REPORT INFORMATION
  Report Type: 
  Country: None (occurrence: None)
  Receive Date: 20100822
  Receipt Date: 20100812
  Transmission Date: 20110219
  Serious: Yes (Death, Hospitalization)
  Sender: FDA-Public Use
  Company Number: PHFR2010IE01552

PATIENT
  Sex: Female

DRUGS (2)
  1. CLOZARIL [Suspect]
     Indication: SCHIZOPHRENIA
     Dosage: 600MG DAILY
     Route: 048
     Dates: start: 20001213
  2. CLOZARIL [Suspect]
     Route: 048
     Dates: start: 20001213, end: 19000101

REACTIONS (8)
  - ANAEMIA [None]
  - FATIGUE [None]
  - HEPATIC NEOPLASM MALIGNANT [None]
  - HYPERHIDROSIS [None]
  - LETHARGY [None]
  - MALAISE [None]
  - MALIGNANT NEOPLASM PROGRESSION [None]
  - RESTLESSNESS [None]
